FAERS Safety Report 5512880-7 (Version None)
Quarter: 2007Q4

REPORT INFORMATION
  Report Type: 
  Country: None (occurrence: None)
  Receive Date: 20071112
  Receipt Date: 20071105
  Transmission Date: 20080405
  Serious: Yes (Congenital Anomaly)
  Sender: FDA-Public Use
  Company Number: A0683130A

PATIENT
  Sex: Female

DRUGS (1)
  1. PAXIL [Suspect]
     Indication: DEPRESSION

REACTIONS (3)
  - CARDIAC DISORDER [None]
  - DRUG EXPOSURE DURING PREGNANCY [None]
  - VENTRICULAR SEPTAL DEFECT [None]
